FAERS Safety Report 4366114-X (Version None)
Quarter: 2004Q2

REPORT INFORMATION
  Report Type: 
  Country: None (occurrence: None)
  Receive Date: 20040524
  Receipt Date: 20040511
  Transmission Date: 20050107
  Serious: Yes (Hospitalization)
  Sender: FDA-Public Use
  Company Number: JACFRA2000000690

PATIENT
  Age: 17 Year
  Sex: Male

DRUGS (5)
  1. TOPIRAMATE [Suspect]
     Indication: EPILEPSY
     Dosage: SEE IMAGE
     Route: 048
     Dates: end: 20000401
  2. TOPIRAMATE [Suspect]
     Indication: EPILEPSY
     Dosage: SEE IMAGE
     Route: 048
     Dates: start: 20000401, end: 20000430
  3. DEPAKINE (VALPROATE SODIUM)TABLETS [Suspect]
     Indication: EPILEPSY
     Dosage: 750 MG, 2 IN 1 DAY, ORAL
     Route: 048
     Dates: start: 20000403
  4. DI-HYDAN (TABLETS) PHENYTOIN [Concomitant]
  5. RIVOTRIL (TABLETS) CLONAZEPAM [Concomitant]

REACTIONS (6)
  - BLOOD ALKALINE PHOSPHATASE INCREASED [None]
  - CONVULSION [None]
  - DEPRESSED LEVEL OF CONSCIOUSNESS [None]
  - ELECTROENCEPHALOGRAM ABNORMAL [None]
  - GAMMA-GLUTAMYLTRANSFERASE INCREASED [None]
  - SOMNOLENCE [None]
